FAERS Safety Report 21309979 (Version 2)
Quarter: 2022Q3

REPORT INFORMATION
  Report Type: Spontaneous
  Country: US (occurrence: US)
  Receive Date: 20220909
  Receipt Date: 20220915
  Transmission Date: 20221026
  Serious: No
  Sender: FDA-Public Use
  Company Number: US-AMGEN-USASP2022155207

PATIENT
  Sex: Female

DRUGS (1)
  1. AIMOVIG [Suspect]
     Active Substance: ERENUMAB-AOOE
     Indication: Product used for unknown indication
     Dosage: UNK
     Route: 065

REACTIONS (6)
  - Injection site swelling [Unknown]
  - Dizziness [Not Recovered/Not Resolved]
  - Headache [Recovered/Resolved]
  - Wrong technique in product usage process [Unknown]
  - Product storage error [Unknown]
  - Product administration error [Unknown]
